FAERS Safety Report 23653473 (Version 1)
Quarter: 2024Q1

REPORT INFORMATION
  Report Type: Report from Study
  Country: US (occurrence: US)
  Receive Date: 20240320
  Receipt Date: 20240320
  Transmission Date: 20240410
  Serious: Yes (Death, Other)
  Sender: FDA-Public Use
  Company Number: US-IPSEN Group, Research and Development-2024-04614

PATIENT
  Age: 57 Year
  Sex: Male

DRUGS (1)
  1. ONIVYDE [Suspect]
     Active Substance: IRINOTECAN HYDROCHLORIDE
     Indication: Product used for unknown indication
     Dosage: UNKNOWN
     Route: 065

REACTIONS (1)
  - Death [Fatal]

NARRATIVE: CASE EVENT DATE: 20240306
